FAERS Safety Report 7235634-2 (Version None)
Quarter: 2011Q1

REPORT INFORMATION
  Report Type: 
  Country: None (occurrence: None)
  Receive Date: 20110120
  Receipt Date: 20110110
  Transmission Date: 20110831
  Serious: Yes (Death, Hospitalization, Other)
  Sender: FDA-Public Use
  Company Number: PL-BAXTER-2010BH022611

PATIENT
  Age: 54 Year
  Sex: Female

DRUGS (3)
  1. DIANEAL [Suspect]
     Route: 033
  2. DIANEAL [Suspect]
     Indication: PERITONEAL DIALYSIS
     Route: 033
  3. DIANEAL [Suspect]
     Route: 033

REACTIONS (3)
  - DEATH [None]
  - ANKLE FRACTURE [None]
  - POSTOPERATIVE ABSCESS [None]
